FAERS Safety Report 8858015 (Version 1)
Quarter: 2012Q4

REPORT INFORMATION
  Report Type: 
  Country: US (occurrence: US)
  Receive Date: 20121024
  Receipt Date: 20121024
  Transmission Date: 20130627
  Serious: Yes (Hospitalization)
  Sender: FDA-Public Use
  Company Number: US-AMGEN-USASP2011064881

PATIENT
  Age: 76 Year
  Sex: Female
  Weight: 90.7 kg

DRUGS (6)
  1. ENBREL [Suspect]
     Indication: PRODUCT USED FOR UNKNOWN INDICATION
     Dosage: 25 mg, 2 times/wk
     Route: 058
  2. PRILOSEC [Concomitant]
     Dosage: 10 mg, UNK
  3. MOBIC [Concomitant]
     Dosage: 7.5 mg, UNK
  4. ZYRTEC [Concomitant]
     Dosage: 10 mg, UNK
  5. AMLODIPINE [Concomitant]
     Dosage: 5 mg, UNK
  6. VITAMIN D [Concomitant]
     Dosage: 1000 IU, UNK

REACTIONS (2)
  - Staphylococcal infection [Unknown]
  - Infection [Unknown]
